FAERS Safety Report 21801632 (Version 1)
Quarter: 2022Q4

REPORT INFORMATION
  Report Type: Spontaneous
  Country: US (occurrence: US)
  Receive Date: 20221230
  Receipt Date: 20221230
  Transmission Date: 20230112
  Serious: Yes (Other)
  Sender: FDA-Public Use
  Company Number: US-ORGANON-O2212USA001863

PATIENT
  Sex: Male

DRUGS (1)
  1. COZAAR [Suspect]
     Active Substance: LOSARTAN POTASSIUM
     Dosage: UNK
     Route: 048

REACTIONS (5)
  - Cardiac disorder [Unknown]
  - Product shape issue [Unknown]
  - Product confusion [Unknown]
  - Wrong product administered [Unknown]
  - Circumstance or information capable of leading to medication error [Unknown]
